FAERS Safety Report 18521561 (Version 2)
Quarter: 2020Q4

REPORT INFORMATION
  Report Type: Spontaneous
  Country: FR (occurrence: FR)
  Receive Date: 20201119
  Receipt Date: 20201217
  Transmission Date: 20210114
  Serious: Yes (Other)
  Sender: FDA-Public Use
  Company Number: FR-MYLANLABS-2020M1094994

PATIENT

DRUGS (2)
  1. IMATINIB. [Suspect]
     Active Substance: IMATINIB MESYLATE
     Dosage: UNK UNK, QD
     Route: 065
     Dates: start: 200811, end: 201410
  2. IMATINIB. [Suspect]
     Active Substance: IMATINIB MESYLATE
     Indication: CHRONIC MYELOID LEUKAEMIA
     Dosage: 260-300 MG/M?/DAY
     Route: 065
     Dates: start: 200604, end: 201010

REACTIONS (2)
  - Growth retardation [Unknown]
  - Drug ineffective [Unknown]
